FAERS Safety Report 10197357 (Version 1)
Quarter: 2014Q2

REPORT INFORMATION
  Report Type: Spontaneous
  Country: US (occurrence: None)
  Receive Date: 20140523
  Receipt Date: 20140523
  Transmission Date: 20141212
  Serious: Yes (Life-Threatening, Hospitalization)
  Sender: FDA-Public Use
  Company Number: None

PATIENT
  Age: 90 Year
  Sex: Male
  Weight: 68 kg

DRUGS (1)
  1. ENOXAPARIN [Suspect]
     Indication: ATRIAL FIBRILLATION
     Dosage: ML, BID, SQ
     Route: 058
     Dates: start: 20131106, end: 20131114

REACTIONS (1)
  - Haemorrhage [None]
